FAERS Safety Report 6964374-X (Version None)
Quarter: 2010Q3

REPORT INFORMATION
  Report Type: 
  Country: None (occurrence: None)
  Receive Date: 20100903
  Receipt Date: 20100824
  Transmission Date: 20110219
  Serious: Yes (Other)
  Sender: FDA-Public Use
  Company Number: CA-ABBOTT-10P-028-0666354-00

PATIENT
  Sex: Male

DRUGS (1)
  1. LUPRON DEPOT [Suspect]
     Indication: PROSTATE CANCER
     Dates: start: 20080801

REACTIONS (9)
  - FEELING HOT [None]
  - GENERAL PHYSICAL HEALTH DETERIORATION [None]
  - INCORRECT DOSE ADMINISTERED [None]
  - INFLAMMATION [None]
  - MUSCLE NECROSIS [None]
  - NERVE INJURY [None]
  - OEDEMA PERIPHERAL [None]
  - PAIN IN EXTREMITY [None]
  - PERIPHERAL ISCHAEMIA [None]
